FAERS Safety Report 8973199 (Version 1)
Quarter: 2012Q4

REPORT INFORMATION
  Report Type: 
  Country: US (occurrence: US)
  Receive Date: 20121219
  Receipt Date: 20121219
  Transmission Date: 20130627
  Serious: Yes (Other)
  Sender: FDA-Public Use
  Company Number: US-SANOFI-AVENTIS-2012SA092637

PATIENT
  Sex: Female

DRUGS (3)
  1. DOXORUBICIN [Suspect]
     Indication: BREAST CANCER STAGE III
     Route: 065
  2. DOCETAXEL [Suspect]
     Indication: BREAST CANCER STAGE III
     Route: 065
  3. CYCLOPHOSPHAMIDE [Suspect]
     Indication: BREAST CANCER STAGE III
     Route: 065

REACTIONS (3)
  - Cellulitis [Unknown]
  - Meconium stain [Unknown]
  - Exposure during pregnancy [Unknown]
